FAERS Safety Report 5629982-7 (Version None)
Quarter: 2008Q1

REPORT INFORMATION
  Report Type: 
  Country: None (occurrence: None)
  Receive Date: 20080218
  Receipt Date: 20080206
  Transmission Date: 20080703
  Serious: Yes (Hospitalization)
  Sender: FDA-Public Use
  Company Number: JP-ROCHE-546343

PATIENT
  Age: 30 Year
  Sex: Female

DRUGS (7)
  1. CELLCEPT [Suspect]
     Route: 065
  2. CYCLOSPORINE [Suspect]
     Indication: DRUG USE FOR UNKNOWN INDICATION
     Route: 065
  3. METHYLPREDNISOLONE [Suspect]
     Indication: DRUG USE FOR UNKNOWN INDICATION
     Route: 042
  4. METHYLPREDNISOLONE [Suspect]
     Route: 042
  5. METHYLPREDNISOLONE [Suspect]
     Route: 042
  6. METHYLPREDNISOLONE [Suspect]
     Route: 042
  7. BASILIXIMAB [Suspect]
     Indication: DRUG USE FOR UNKNOWN INDICATION
     Route: 065

REACTIONS (1)
  - URINE TRANSITIONAL CELLS PRESENT [None]
